FAERS Safety Report 13905243 (Version 1)
Quarter: 2017Q3

REPORT INFORMATION
  Report Type: Spontaneous
  Country: US (occurrence: None)
  Receive Date: 20170821
  Receipt Date: 20170821
  Transmission Date: 20171127
  Serious: Yes (Hospitalization)
  Sender: FDA-Public Use
  Company Number: None

PATIENT
  Age: 63 Year
  Sex: Male
  Weight: 78.2 kg

DRUGS (7)
  1. ETOPOSIDE (VP-16) [Suspect]
     Active Substance: ETOPOSIDE
     Dates: end: 20170807
  2. PREDNISONE. [Suspect]
     Active Substance: PREDNISONE
     Dates: end: 20170808
  3. RITUXIMAB (MOAB C2B8 ANTI CD20, CHIMERIC) [Suspect]
     Active Substance: RITUXIMAB
     Dates: end: 20170803
  4. METHOTREXATE. [Suspect]
     Active Substance: METHOTREXATE
     Dates: end: 20170804
  5. CYCLOPHOSPHAMIDE. [Suspect]
     Active Substance: CYCLOPHOSPHAMIDE
     Dates: end: 20170807
  6. DOXORUBICIN HYDROCHLORIDE. [Suspect]
     Active Substance: DOXORUBICIN HYDROCHLORIDE
     Dates: end: 20170807
  7. VINCRISTINE SULFATE. [Suspect]
     Active Substance: VINCRISTINE SULFATE
     Dates: end: 20170807

REACTIONS (12)
  - Acute kidney injury [None]
  - Febrile neutropenia [None]
  - Malaise [None]
  - Liver function test increased [None]
  - Escherichia test positive [None]
  - Vomiting [None]
  - Unresponsive to stimuli [None]
  - Pyrexia [None]
  - Hypotension [None]
  - Pleural effusion [None]
  - Blood culture positive [None]
  - Colitis [None]

NARRATIVE: CASE EVENT DATE: 20170813
